FAERS Safety Report 7754045-4 (Version None)
Quarter: 2011Q3

REPORT INFORMATION
  Report Type: 
  Country: None (occurrence: None)
  Receive Date: 20110915
  Receipt Date: 20110908
  Transmission Date: 20111222
  Serious: Yes (Hospitalization)
  Sender: FDA-Public Use
  Company Number: US-ABBOTT-11P-163-0841444-00

PATIENT
  Sex: Male

DRUGS (17)
  1. ASPIRIN [Concomitant]
     Indication: PRODUCT USED FOR UNKNOWN INDICATION
     Route: 048
  2. SODIUM BICARBONATE [Concomitant]
     Indication: PRODUCT USED FOR UNKNOWN INDICATION
     Route: 048
  3. CALCIUM CARBONATE [Concomitant]
     Indication: PRODUCT USED FOR UNKNOWN INDICATION
     Dosage: 2 TABLETS AFTER MEALS
  4. NIFEDIPINE [Concomitant]
     Indication: PRODUCT USED FOR UNKNOWN INDICATION
     Dosage: 90 MG DAILY
     Route: 048
  5. LACTOBACILLUS [Concomitant]
     Indication: PRODUCT USED FOR UNKNOWN INDICATION
  6. PROBIOTIC [Concomitant]
     Indication: PRODUCT USED FOR UNKNOWN INDICATION
  7. PLAVIX [Concomitant]
     Dosage: 75 MG DAILY
     Route: 048
  8. RENA-VITE [Concomitant]
     Indication: PRODUCT USED FOR UNKNOWN INDICATION
     Dosage: 1 TABLET DAILY
     Route: 048
  9. GABAPENTIN [Concomitant]
     Indication: PRODUCT USED FOR UNKNOWN INDICATION
     Route: 048
  10. ASPIRIN [Concomitant]
     Dosage: 81 MG DAILY
     Route: 048
  11. HYDRALAZINE HCL [Concomitant]
     Indication: PRODUCT USED FOR UNKNOWN INDICATION
     Route: 048
  12. LABOTALOL [Concomitant]
     Indication: PRODUCT USED FOR UNKNOWN INDICATION
     Route: 048
  13. LASIX [Concomitant]
     Indication: PRODUCT USED FOR UNKNOWN INDICATION
     Dosage: 80 MG DAILY
     Route: 048
  14. HUMIRA [Suspect]
     Indication: PSORIASIS
     Dates: start: 20110101, end: 20110708
  15. PLAVIX [Concomitant]
     Indication: PRODUCT USED FOR UNKNOWN INDICATION
     Dosage: 75MG QHS
  16. XXX [Concomitant]
     Indication: PRODUCT USED FOR UNKNOWN INDICATION
     Dosage: 30 MG DAILY
     Route: 048
  17. RENVELS [Concomitant]
     Indication: PRODUCT USED FOR UNKNOWN INDICATION
     Dosage: 650 MG AFTER MEALS

REACTIONS (17)
  - RASH [None]
  - BRONCHITIS [None]
  - CLOSTRIDIUM DIFFICILE COLITIS [None]
  - HYPERTENSION [None]
  - PAIN IN EXTREMITY [None]
  - ARTHRALGIA [None]
  - PNEUMONIA [None]
  - DEHYDRATION [None]
  - ABDOMINAL PAIN [None]
  - CELLULITIS [None]
  - CHEST PAIN [None]
  - GAIT DISTURBANCE [None]
  - DIARRHOEA [None]
  - JOINT SWELLING [None]
  - CORONARY ARTERY DISEASE [None]
  - NODULE [None]
  - DECREASED APPETITE [None]
